FAERS Safety Report 10245404 (Version 1)
Quarter: 2014Q2

REPORT INFORMATION
  Report Type: Spontaneous
  Country: CZ (occurrence: CZ)
  Receive Date: 20140618
  Receipt Date: 20140618
  Transmission Date: 20141212
  Serious: Yes (Other)
  Sender: FDA-Public Use
  Company Number: PHHY2014CZ074495

PATIENT
  Age: 31 Year
  Sex: Female

DRUGS (2)
  1. GILENYA [Suspect]
     Indication: MULTIPLE SCLEROSIS
     Dates: start: 201207
  2. GILENYA [Suspect]
     Dates: start: 201207

REACTIONS (11)
  - Gastrointestinal disorder [Recovered/Resolved]
  - Abdominal pain upper [Unknown]
  - Dyspepsia [Unknown]
  - Mucosal inflammation [Unknown]
  - Multiple sclerosis relapse [Recovering/Resolving]
  - Hyperaesthesia [Unknown]
  - Nuclear magnetic resonance imaging brain abnormal [Unknown]
  - Paraparesis [Unknown]
  - Hyperreflexia [Unknown]
  - Cerebellar syndrome [Unknown]
  - Ataxia [Unknown]
